FAERS Safety Report 17641418 (Version 2)
Quarter: 2020Q2

REPORT INFORMATION
  Report Type: Other
  Country: ES (occurrence: ES)
  Receive Date: 20200408
  Receipt Date: 20200408
  Transmission Date: 20200713
  Serious: Yes (Life-Threatening)
  Sender: FDA-Public Use
  Company Number: ES-CELLTRION INC.-2020ES021320

PATIENT

DRUGS (6)
  1. METILPREDNISOLONA [METHYLPREDNISOLONE] [Suspect]
     Active Substance: METHYLPREDNISOLONE
     Indication: DIFFUSE LARGE B-CELL LYMPHOMA STAGE IV
     Dosage: 2 G, 1 TOTAL
     Route: 042
     Dates: start: 20190909, end: 20191007
  2. RITUXIMAB (UNKNOWN) [Suspect]
     Active Substance: RITUXIMAB
     Indication: DIFFUSE LARGE B-CELL LYMPHOMA STAGE IV
     Dosage: 1.6 G, 1 TOTAL (CAD 30/04/2020)
     Route: 042
     Dates: start: 20190909, end: 20191007
  3. ONDANSETRON [Concomitant]
     Active Substance: ONDANSETRON
     Indication: NAUSEA
     Dosage: 272 MG, 1 TOTAL
     Route: 042
     Dates: start: 20190909, end: 20191013
  4. ETOPOSIDO [Suspect]
     Active Substance: ETOPOSIDE
     Indication: DIFFUSE LARGE B-CELL LYMPHOMA STAGE IV
     Dosage: 681.6 MG, 1 TOTAL
     Route: 042
     Dates: start: 20190909, end: 20191007
  5. CITARABINA [Suspect]
     Active Substance: CYTARABINE
     Indication: DIFFUSE LARGE B-CELL LYMPHOMA STAGE IV
     Dosage: 8.52 MG, 1 TOTAL
     Route: 042
     Dates: start: 20190913, end: 20191011
  6. CISPLATINO [Suspect]
     Active Substance: CISPLATIN
     Indication: DIFFUSE LARGE B-CELL LYMPHOMA STAGE IV
     Dosage: 426.4 MG, 1 TOTAL
     Route: 042
     Dates: start: 20190909, end: 20191007

REACTIONS (2)
  - Septic shock [Recovered/Resolved]
  - Proctitis [Recovered/Resolved]

NARRATIVE: CASE EVENT DATE: 20191011
